FAERS Safety Report 4587333-3 (Version None)
Quarter: 2005Q1

REPORT INFORMATION
  Report Type: 
  Country: None (occurrence: None)
  Receive Date: 20050215
  Receipt Date: 20041129
  Transmission Date: 20050727
  Serious: Yes (Hospitalization)
  Sender: FDA-Public Use
  Company Number: 2004106444

PATIENT
  Age: 50 Year
  Sex: Female

DRUGS (3)
  1. CELEBREX [Suspect]
     Indication: BILIARY COLIC
  2. ANTIBIOTICS (ANTIBIOTICS) [Concomitant]
     Indication: BILIARY COLIC
  3. ANTITHROMBOTIC AGENTS (ANTITHROMBOTIC AGENTS) [Suspect]
     Indication: BILIARY COLIC

REACTIONS (7)
  - ABDOMINAL PAIN [None]
  - HAEMATURIA [None]
  - HAEMOBILIA [None]
  - INTERNATIONAL NORMALISED RATIO INCREASED [None]
  - RETROPERITONEAL HAEMORRHAGE [None]
  - SHOCK [None]
  - URINARY BLADDER HAEMORRHAGE [None]
